FAERS Safety Report 5370968-8 (Version None)
Quarter: 2007Q2

REPORT INFORMATION
  Report Type: 
  Country: None (occurrence: None)
  Receive Date: 20070626
  Receipt Date: 20070622
  Transmission Date: 20071010
  Serious: Yes (Hospitalization)
  Sender: FDA-Public Use
  Company Number: US-ROXANE LABORATORIES, INC-2007-BP-12586RO

PATIENT
  Sex: Female

DRUGS (1)
  1. MORPHINE SULFATE IR [Suspect]
     Route: 048

REACTIONS (1)
  - DRUG DISPENSING ERROR [None]
